FAERS Safety Report 9193684 (Version 1)
Quarter: 2013Q1

REPORT INFORMATION
  Report Type: Spontaneous
  Country: IT (occurrence: IT)
  Receive Date: 20130327
  Receipt Date: 20130327
  Transmission Date: 20140127
  Serious: Yes (Hospitalization)
  Sender: FDA-Public Use
  Company Number: IT-GLAXOSMITHKLINE-B0878299A

PATIENT
  Sex: 0

DRUGS (2)
  1. TYVERB [Suspect]
     Indication: BREAST CANCER
     Dosage: 1250MG PER DAY
     Route: 048
     Dates: start: 20121220, end: 20130227
  2. CAPECITABINE [Concomitant]
     Dosage: 300MG PER DAY
     Route: 048
     Dates: start: 20121220, end: 20130227

REACTIONS (2)
  - Deep vein thrombosis [Recovered/Resolved with Sequelae]
  - Pulmonary embolism [Recovered/Resolved with Sequelae]
